FAERS Safety Report 4553239-9 (Version None)
Quarter: 2005Q1

REPORT INFORMATION
  Report Type: 
  Country: None (occurrence: None)
  Receive Date: 20050112
  Receipt Date: 20050112
  Transmission Date: 20050727
  Serious: No
  Sender: FDA-Public Use
  Company Number: None

PATIENT
  Age: 55 Year
  Sex: Male
  Weight: 65.7716 kg

DRUGS (8)
  1. PACLITAXEL [Suspect]
     Indication: GASTROOESOPHAGEAL CANCER
     Dosage: 50MG/M2 IV
     Route: 042
     Dates: start: 20040913
  2. PACLITAXEL [Suspect]
     Indication: GASTROOESOPHAGEAL CANCER
     Dosage: 50MG/M2 IV
     Route: 042
     Dates: start: 20040920
  3. PACLITAXEL [Suspect]
     Indication: GASTROOESOPHAGEAL CANCER
     Dosage: 50MG/M2 IV
     Route: 042
     Dates: start: 20040927
  4. CISPLATIN [Suspect]
     Indication: GASTROOESOPHAGEAL CANCER
     Dosage: 30MG/M2 IV
     Route: 042
     Dates: start: 20041004
  5. CISPLATIN [Suspect]
     Indication: GASTROOESOPHAGEAL CANCER
     Dosage: 30MG/M2 IV
     Route: 042
     Dates: start: 20041011
  6. RADIATION THERAPY [Concomitant]
  7. COUMADIN [Concomitant]
  8. SURGERY [Concomitant]

REACTIONS (5)
  - OESOPHAGOGASTRECTOMY [None]
  - PANCREATECTOMY [None]
  - PENILE SWELLING [None]
  - PRIAPISM [None]
  - SPLENECTOMY [None]
